FAERS Safety Report 9198123 (Version 1)
Quarter: 2013Q1

REPORT INFORMATION
  Report Type: Spontaneous
  Country: DE (occurrence: DE)
  Receive Date: 20130329
  Receipt Date: 20130329
  Transmission Date: 20140127
  Serious: Yes (Hospitalization)
  Sender: FDA-Public Use
  Company Number: DE-ELI_LILLY_AND_COMPANY-DE201303006558

PATIENT
  Age: 9 Year
  Sex: Male

DRUGS (4)
  1. STRATTERA [Suspect]
     Indication: ATTENTION DEFICIT/HYPERACTIVITY DISORDER
     Dosage: UNK, UNKNOWN
     Route: 048
     Dates: start: 201201
  2. METHYLPHENIDAT [Concomitant]
     Dosage: UNK, UNKNOWN
     Route: 065
  3. RITALIN [Concomitant]
     Dosage: UNK, UNKNOWN
     Route: 065
  4. MEDIKINET [Concomitant]
     Dosage: UNK UNK, UNKNOWN
     Route: 065

REACTIONS (1)
  - Pyrexia [Recovered/Resolved]
